FAERS Safety Report 11387763 (Version 2)
Quarter: 2015Q3

REPORT INFORMATION
  Report Type: Spontaneous
  Country: JP (occurrence: JP)
  Receive Date: 20150817
  Receipt Date: 20150826
  Transmission Date: 20151125
  Serious: Yes (Hospitalization, Other)
  Sender: FDA-Public Use
  Company Number: JP-NOVOPROD-458357

PATIENT
  Sex: Female

DRUGS (2)
  1. NOVORAPID [Suspect]
     Active Substance: INSULIN ASPART
     Indication: DIABETES MELLITUS
     Dosage: 600 IU
     Route: 058
     Dates: start: 201411
  2. NOVORAPID [Suspect]
     Active Substance: INSULIN ASPART
     Dosage: 900 IU
     Route: 058
     Dates: start: 201411

REACTIONS (3)
  - Hypoglycaemia [Recovered/Resolved]
  - Intentional overdose [Unknown]
  - Suicide attempt [Unknown]

NARRATIVE: CASE EVENT DATE: 201411
